FAERS Safety Report 24841069 (Version 1)
Quarter: 2025Q1

REPORT INFORMATION
  Report Type: Spontaneous
  Country: US (occurrence: None)
  Receive Date: 20250113
  Receipt Date: 20250113
  Transmission Date: 20250408
  Serious: No
  Sender: FDA-CTU
  Company Number: None

PATIENT

DRUGS (1)
  1. ISOTRETINOIN [Suspect]
     Active Substance: ISOTRETINOIN

REACTIONS (7)
  - Dry skin [None]
  - Skin tightness [None]
  - Pruritus [None]
  - Dry skin [None]
  - Discomfort [None]
  - Impaired quality of life [None]
  - Sebaceous gland disorder [None]
